FAERS Safety Report 9201242 (Version 1)
Quarter: 2013Q2

REPORT INFORMATION
  Report Type: Report from Study
  Country: NZ (occurrence: NZ)
  Receive Date: 20130401
  Receipt Date: 20130401
  Transmission Date: 20140414
  Serious: Yes (Other)
  Sender: FDA-Public Use
  Company Number: PHHY2013NZ029995

PATIENT
  Sex: Female

DRUGS (1)
  1. CLOZARIL [Suspect]
     Dosage: UNK UKN, UNK
     Dates: end: 20121220

REACTIONS (5)
  - Bronchiectasis [Unknown]
  - Emphysema [Unknown]
  - Toxicity to various agents [Unknown]
  - Liver function test abnormal [Unknown]
  - Lower respiratory tract infection [Not Recovered/Not Resolved]
